FAERS Safety Report 7527010-X (Version None)
Quarter: 2011Q2

REPORT INFORMATION
  Report Type: 
  Country: None (occurrence: None)
  Receive Date: 20110606
  Receipt Date: 20100311
  Transmission Date: 20111010
  Serious: No
  Sender: FDA-Public Use
  Company Number: US-BAYER-201016460NA

PATIENT
  Sex: Female

DRUGS (2)
  1. AVELOX [Suspect]
     Indication: SINUSITIS
  2. PREDNISONE [Concomitant]

REACTIONS (3)
  - OEDEMA [None]
  - URTICARIA [None]
  - OEDEMA PERIPHERAL [None]
